FAERS Safety Report 10338103 (Version 1)
Quarter: 2014Q3

REPORT INFORMATION
  Report Type: Spontaneous
  Country: US (occurrence: None)
  Receive Date: 20140722
  Receipt Date: 20140722
  Transmission Date: 20150326
  Serious: Yes (Other)
  Sender: FDA-Public Use
  Company Number: None

PATIENT
  Age: 64 Year
  Sex: Female

DRUGS (2)
  1. SOVALDI [Suspect]
     Active Substance: SOFOSBUVIR
     Indication: HEPATITIS C
     Dosage: ONE TABLET, QD, ORAL
     Route: 048
     Dates: start: 20140523, end: 20140721
  2. OLYSIO [Suspect]
     Active Substance: SIMEPREVIR
     Indication: HEPATITIS C
     Dosage: ONE CAPSULE, QD, ORAL
     Route: 048
     Dates: start: 20140523, end: 20140721

REACTIONS (4)
  - Eye irritation [None]
  - Vision blurred [None]
  - Eye swelling [None]
  - Lacrimation increased [None]

NARRATIVE: CASE EVENT DATE: 20140601
